FAERS Safety Report 17269862 (Version 3)
Quarter: 2020Q2

REPORT INFORMATION
  Report Type: Report from Study
  Country: US (occurrence: US)
  Receive Date: 20200114
  Receipt Date: 20200421
  Transmission Date: 20200713
  Serious: No
  Sender: FDA-Public Use
  Company Number: NVSC2020US004773

PATIENT
  Age: 52 Year
  Sex: Female
  Weight: 166.92 kg

DRUGS (2)
  1. ASPIRIN. [Concomitant]
     Active Substance: ASPIRIN
     Indication: PROPHYLAXIS
     Dosage: 325 MG, QD 5 YEARS
     Route: 065
  2. MAYZENT [Suspect]
     Active Substance: SIPONIMOD
     Indication: PRODUCT USED FOR UNKNOWN INDICATION
     Dosage: 2 MG, QD
     Route: 048
     Dates: start: 20191030

REACTIONS (4)
  - Malaise [Recovered/Resolved]
  - Muscular weakness [Unknown]
  - Contusion [Unknown]
  - Foot deformity [Unknown]

NARRATIVE: CASE EVENT DATE: 20191030
